FAERS Safety Report 16008305 (Version 1)
Quarter: 2019Q1

REPORT INFORMATION
  Report Type: Spontaneous
  Country: IT (occurrence: IT)
  Receive Date: 20190226
  Receipt Date: 20190226
  Transmission Date: 20190418
  Serious: Yes (Hospitalization)
  Sender: FDA-Public Use
  Company Number: IT-ASTRAZENECA-2019SE28372

PATIENT
  Age: 58 Year
  Sex: Female

DRUGS (10)
  1. FOLIFILL [Concomitant]
  2. BRILIQUE [Concomitant]
     Active Substance: TICAGRELOR
  3. FASLODEX [Suspect]
     Active Substance: FULVESTRANT
     Indication: BREAST NEOPLASM
     Dosage: 250.0MG EVERY CYCLE
     Route: 030
     Dates: start: 20190109, end: 20190205
  4. LASIX [Concomitant]
     Active Substance: FUROSEMIDE
  5. IBRANCE [Suspect]
     Active Substance: PALBOCICLIB
     Indication: BREAST CANCER
     Dosage: 125.0MG EVERY CYCLE
     Route: 048
     Dates: start: 20190109, end: 20190205
  6. ISMO [Concomitant]
     Active Substance: ISOSORBIDE MONONITRATE
  7. BIFRIL [Concomitant]
     Active Substance: ZOFENOPRIL
  8. DILATREND [Concomitant]
     Active Substance: CARVEDILOL
  9. LUVION [Concomitant]
  10. TOTALIP [Concomitant]
     Active Substance: ATORVASTATIN

REACTIONS (2)
  - Pancytopenia [Not Recovered/Not Resolved]
  - Pyrexia [Not Recovered/Not Resolved]

NARRATIVE: CASE EVENT DATE: 20190205
